FAERS Safety Report 24002687 (Version 2)
Quarter: 2024Q2

REPORT INFORMATION
  Report Type: Spontaneous
  Country: JP (occurrence: JP)
  Receive Date: 20240624
  Receipt Date: 20240627
  Transmission Date: 20240716
  Serious: Yes (Hospitalization, Other)
  Sender: FDA-Public Use
  Company Number: JP-002147023-NVSJ2024JP007382

PATIENT
  Weight: 2.458 kg

DRUGS (3)
  1. VALSARTAN [Suspect]
     Active Substance: VALSARTAN
     Indication: Foetal exposure during pregnancy
     Dosage: MATERNAL  EXPOSURE DURING  PREGNANCY:880 MG
     Route: 064
  2. ZOLPIDEM TARTRATE [Concomitant]
     Active Substance: ZOLPIDEM TARTRATE
     Indication: Foetal exposure during pregnancy
     Dosage: UNK
     Route: 064
  3. ETIZOLAM [Concomitant]
     Active Substance: ETIZOLAM
     Indication: Foetal exposure during pregnancy
     Dosage: UNK
     Route: 064

REACTIONS (4)
  - Foetal growth restriction [Unknown]
  - Low birth weight baby [Unknown]
  - Renal impairment [Unknown]
  - Foetal exposure during pregnancy [Unknown]
